FAERS Safety Report 4524776-8 (Version None)
Quarter: 2004Q4

REPORT INFORMATION
  Report Type: 
  Country: None (occurrence: None)
  Receive Date: 20041208
  Receipt Date: 20041203
  Transmission Date: 20050328
  Serious: Yes (Hospitalization)
  Sender: FDA-Public Use
  Company Number: FRWYE237526NOV04

PATIENT
  Age: 70 Year
  Sex: Female

DRUGS (10)
  1. RAPAMUNE [Suspect]
     Indication: PROPHYLAXIS AGAINST TRANSPLANT REJECTION
     Dosage: 1 MG 1X PER 1 DAY, ORAL
     Route: 048
     Dates: start: 20040826, end: 20040928
  2. CELLCEPT [Suspect]
     Indication: PROPHYLAXIS AGAINST TRANSPLANT REJECTION
     Dosage: 11 G 1X PER 1 DAY, ORAL
     Route: 048
     Dates: start: 20030615
  3. NEORAL [Suspect]
     Indication: PROPHYLAXIS AGAINST TRANSPLANT REJECTION
     Dosage: 75 MG 2X PER 1 DAY, ORAL
     Route: 048
     Dates: start: 20030615, end: 20040825
  4. NEORAL [Suspect]
     Dosage: 40 MG 2X PER 1 DAY, ORAL
     Route: 048
     Dates: start: 20040826
  5. TAHOR (ATORVASTATIN) [Concomitant]
  6. ARMIDEX (ANASTROZOLE) [Concomitant]
  7. ATENOLOL [Concomitant]
  8. BROMAZEPAM (BROMAZEPAM) [Concomitant]
  9. ATACAND [Concomitant]
  10. TERCIAN (GYAMEMAZINE) [Concomitant]

REACTIONS (8)
  - ARTHRALGIA [None]
  - CONJUNCTIVITIS [None]
  - DIARRHOEA [None]
  - DRUG INTERACTION [None]
  - FACE OEDEMA [None]
  - LEUKOPENIA [None]
  - MALAISE [None]
  - SKIN FISSURES [None]
